FAERS Safety Report 8851065 (Version 2)
Quarter: 2012Q4

REPORT INFORMATION
  Report Type: 
  Country: US (occurrence: US)
  Receive Date: 20121019
  Receipt Date: 20121030
  Transmission Date: 20130627
  Serious: Yes (Hospitalization)
  Sender: FDA-Public Use
  Company Number: US-VIROPHARMA INCORPORATED-20121010CINRY3485

PATIENT
  Age: 59 Year
  Sex: Female

DRUGS (2)
  1. CINRYZE (C1 ESTERASE INHIBITOR (HUMAN)) [Suspect]
     Indication: HEREDITARY ANGIOEDEMA
  2. UNSPECIFIED NARCOTICS [Suspect]
     Indication: PRODUCT USED FOR UNKNOWN INDICATION

REACTIONS (3)
  - Drug withdrawal syndrome [Unknown]
  - Inappropriate schedule of drug administration [Unknown]
  - Therapy regimen changed [Unknown]
